FAERS Safety Report 8513799-X (Version None)
Quarter: 2012Q3

REPORT INFORMATION
  Report Type: 
  Country: None (occurrence: None)
  Receive Date: 20120717
  Receipt Date: 20120712
  Transmission Date: 20120928
  Serious: Yes (Hospitalization)
  Sender: FDA-Public Use
  Company Number: US-AMGEN-USASP2012042654

PATIENT
  Age: 53 Year
  Sex: Female

DRUGS (2)
  1. ENBREL [Suspect]
     Indication: RHEUMATOID ARTHRITIS
     Dosage: 50 MG, QWK
     Dates: start: 20100601
  2. TREXALL [Concomitant]
     Dosage: 20 MG, QWK
     Dates: start: 20090101

REACTIONS (5)
  - MUSCULOSKELETAL STIFFNESS [None]
  - DRUG EFFECT DECREASED [None]
  - RASH [None]
  - JOINT DESTRUCTION [None]
  - DERMATITIS ALLERGIC [None]
